FAERS Safety Report 5164277-X (Version None)
Quarter: 2006Q4

REPORT INFORMATION
  Report Type: 
  Country: None (occurrence: None)
  Receive Date: 20061128
  Receipt Date: 20061128
  Transmission Date: 20070319
  Serious: Yes (Hospitalization)
  Sender: FDA-Public Use
  Company Number: None

PATIENT
  Sex: Female
  Weight: 58.0604 kg

DRUGS (3)
  1. TAXOTERE [Suspect]
     Indication: NON-SMALL CELL LUNG CANCER
     Dosage: 34MG (20MG/M2)  WEEKLY  IV
     Route: 042
     Dates: start: 20061005, end: 20061102
  2. CARBOPLATIN [Suspect]
     Indication: NON-SMALL CELL LUNG CANCER
     Dosage: 154 (AUC-2)  WEEKLY  IV
     Route: 042
     Dates: start: 20061012, end: 20061102
  3. RADIATION [Concomitant]

REACTIONS (9)
  - CONSTIPATION [None]
  - DEHYDRATION [None]
  - FEBRILE NEUTROPENIA [None]
  - HAEMATOCRIT DECREASED [None]
  - NAUSEA [None]
  - OESOPHAGEAL PAIN [None]
  - ORAL INTAKE REDUCED [None]
  - RADIATION MUCOSITIS [None]
  - VOMITING [None]
